FAERS Safety Report 4363676-3 (Version None)
Quarter: 2004Q2

REPORT INFORMATION
  Report Type: 
  Country: None (occurrence: None)
  Receive Date: 20040524
  Receipt Date: 20040524
  Transmission Date: 20050107
  Serious: Yes (Hospitalization)
  Sender: FDA-Public Use
  Company Number: None

PATIENT
  Sex: Male
  Weight: 114.6693 kg

DRUGS (19)
  1. IBUPROFEN [Suspect]
     Indication: INFLUENZA
     Dosage: 2 TAB 2-3 TIMES ORAL
     Route: 048
     Dates: start: 20040120, end: 20040127
  2. PROMETHAZINE HCL [Concomitant]
  3. OCTREOTIDE ACETATE [Concomitant]
  4. THIAMINE HCL [Concomitant]
  5. FOLIC ACID [Concomitant]
  6. MULTI-VITAMIN [Concomitant]
  7. LORAZEPAM [Concomitant]
  8. IPRATROPIUM BROMIDE [Concomitant]
  9. ALBUTEROL [Concomitant]
  10. SOLU-MEDROL [Concomitant]
  11. LACTULOSE [Concomitant]
  12. THAIMINE HCL [Concomitant]
  13. FOLIC ACID [Concomitant]
  14. MULTI-VITAMIN [Concomitant]
  15. TEQUIN [Concomitant]
  16. CLINDAMYCIN HCL [Concomitant]
  17. INSULIN [Concomitant]
  18. ACIPHEX [Concomitant]
  19. OMEPRAZOLE [Concomitant]

REACTIONS (2)
  - HAEMATEMESIS [None]
  - VARICES OESOPHAGEAL [None]
